FAERS Safety Report 10039508 (Version 1)
Quarter: 2014Q1

REPORT INFORMATION
  Report Type: Spontaneous
  Country: US (occurrence: None)
  Receive Date: 20140324
  Receipt Date: 20140324
  Transmission Date: 20141002
  Serious: Yes (Death)
  Sender: FDA-Public Use
  Company Number: UTC-046147

PATIENT
  Age: 70 Year
  Sex: Female
  Weight: 56.7 kg

DRUGS (2)
  1. REMODULIN (1 MILLIGRAM/ MILLILITERS, INJECTION FOR INFUSION) (TREPROSTINIL SODIUM) [Suspect]
     Indication: COR PULMONALE CHRONIC
     Dosage: IVDRP; (0.008 UG/KG, 1 IN 1 MIN)
     Route: 041
     Dates: start: 20140114
  2. ADCIRCA (TADALAFIL) [Concomitant]

REACTIONS (1)
  - Death [None]
